FAERS Safety Report 6188645-2 (Version None)
Quarter: 2009Q2

REPORT INFORMATION
  Report Type: 
  Country: None (occurrence: None)
  Receive Date: 20090511
  Receipt Date: 20090511
  Transmission Date: 20091009
  Serious: Yes (Other)
  Sender: FDA-Public Use
  Company Number: None

PATIENT
  Sex: Female
  Weight: 78.9259 kg

DRUGS (1)
  1. GABAPENTIN [Suspect]
     Indication: RESTLESS LEGS SYNDROME
     Dosage: 2 TABS AT BEDTIME NIGHTLY PO INTRACISTERNAL
     Route: 020
     Dates: start: 20050720, end: 20090504

REACTIONS (9)
  - ARTHRALGIA [None]
  - BLOOD CHOLESTEROL ABNORMAL [None]
  - BLOOD CHOLESTEROL INCREASED [None]
  - LOW DENSITY LIPOPROTEIN INCREASED [None]
  - MYALGIA [None]
  - NO THERAPEUTIC RESPONSE [None]
  - OEDEMA PERIPHERAL [None]
  - PAIN [None]
  - WEIGHT INCREASED [None]
